FAERS Safety Report 19678819 (Version 2)
Quarter: 2021Q3

REPORT INFORMATION
  Report Type: Other
  Country: GR (occurrence: GR)
  Receive Date: 20210810
  Receipt Date: 20210914
  Transmission Date: 20211014
  Serious: Yes (Other)
  Sender: FDA-Public Use
  Company Number: GR-ROCHE-2885286

PATIENT
  Age: 56 Year
  Sex: Female

DRUGS (2)
  1. PREDNISOLONE. [Concomitant]
     Active Substance: PREDNISOLONE
  2. TOCILIZUMAB. [Suspect]
     Active Substance: TOCILIZUMAB
     Indication: SYSTEMIC SCLERODERMA
     Route: 058

REACTIONS (2)
  - Off label use [Unknown]
  - Infected skin ulcer [Unknown]
